FAERS Safety Report 11886172 (Version 1)
Quarter: 2016Q1

REPORT INFORMATION
  Report Type: Spontaneous
  Country: US (occurrence: US)
  Receive Date: 20160104
  Receipt Date: 20160104
  Transmission Date: 20160526
  Serious: Yes (Other)
  Sender: FDA-Public Use
  Company Number: US-MEDTRONIC-1046090

PATIENT
  Age: 12 Year
  Sex: Female

DRUGS (1)
  1. LIORESAL [Suspect]
     Active Substance: BACLOFEN
     Indication: MUSCLE SPASTICITY
     Route: 037

REACTIONS (8)
  - Medical device site fibrosis [Recovered/Resolved with Sequelae]
  - Drug withdrawal syndrome [Recovered/Resolved with Sequelae]
  - No therapeutic response [Recovered/Resolved with Sequelae]
  - Medical device site infection [Recovered/Resolved with Sequelae]
  - Medical device site calcification [Recovered/Resolved with Sequelae]
  - Muscle spasticity [Recovered/Resolved with Sequelae]
  - Pruritus [Recovered/Resolved with Sequelae]
  - Therapeutic response decreased [Recovered/Resolved with Sequelae]

NARRATIVE: CASE EVENT DATE: 201511
